FAERS Safety Report 9008033 (Version 1)
Quarter: 2013Q1

REPORT INFORMATION
  Report Type: Spontaneous
  Country: US (occurrence: US)
  Receive Date: 20130111
  Receipt Date: 20130111
  Transmission Date: 20140127
  Serious: No
  Sender: FDA-Public Use
  Company Number: US-PFIZER INC-2013011278

PATIENT
  Age: 63 Year
  Sex: Female
  Weight: 91.61 kg

DRUGS (3)
  1. XANAX [Suspect]
     Indication: ANXIETY
     Dosage: 2 MG, 2X/DAY
  2. XANAX [Suspect]
     Indication: INSOMNIA
  3. AMBIEN [Concomitant]
     Indication: INSOMNIA
     Dosage: 10 MG, DAILY

REACTIONS (3)
  - Intentional drug misuse [Unknown]
  - Drug ineffective [Unknown]
  - Off label use [Unknown]
